FAERS Safety Report 4659364-6 (Version None)
Quarter: 2005Q2

REPORT INFORMATION
  Report Type: 
  Country: None (occurrence: None)
  Receive Date: 20050510
  Receipt Date: 20050428
  Transmission Date: 20051028
  Serious: Yes (Hospitalization)
  Sender: FDA-Public Use
  Company Number: 214097

PATIENT
  Age: 17 Year
  Sex: Male

DRUGS (1)
  1. RITUXAN [Suspect]
     Indication: NON-HODGKIN'S LYMPHOMA
     Dosage: 120 MG, INTRAVENOUS
     Route: 042
     Dates: start: 20050406

REACTIONS (1)
  - PANCREATITIS ACUTE [None]
